FAERS Safety Report 14562217 (Version 3)
Quarter: 2018Q2

REPORT INFORMATION
  Report Type: Spontaneous
  Country: PT (occurrence: PT)
  Receive Date: 20180222
  Receipt Date: 20180407
  Transmission Date: 20180711
  Serious: Yes (Disabling)
  Sender: FDA-Public Use
  Company Number: PT-AUROBINDO-AUR-APL-2018-009022

PATIENT
  Age: 54 Year
  Sex: Male

DRUGS (3)
  1. GILENYA [Suspect]
     Active Substance: FINGOLIMOD HYDROCHLORIDE
     Indication: MULTIPLE SCLEROSIS
     Dosage: 0.5 MG, QD
     Route: 048
     Dates: start: 20131105
  2. TAMSULOSIN [Suspect]
     Active Substance: TAMSULOSIN
     Indication: BENIGN PROSTATIC HYPERPLASIA
     Dosage: BID
     Route: 048
  3. VIGANTOL                           /00318501/ [Concomitant]
     Active Substance: CHOLECALCIFEROL
     Indication: MULTIPLE SCLEROSIS
     Dosage: UNK
     Route: 048

REACTIONS (14)
  - Chills [Recovering/Resolving]
  - Anal incontinence [Not Recovered/Not Resolved]
  - Ear disorder [Unknown]
  - Balance disorder [Recovering/Resolving]
  - Muscular weakness [Recovering/Resolving]
  - Anxiety [Unknown]
  - Sleep disorder [Unknown]
  - Stress [Unknown]
  - Gait disturbance [Not Recovered/Not Resolved]
  - Gastrointestinal polyp [Unknown]
  - Muscle tightness [Recovering/Resolving]
  - Hypoaesthesia [Not Recovered/Not Resolved]
  - Urinary incontinence [Not Recovered/Not Resolved]
  - Hypertension [Unknown]
